FAERS Safety Report 19659154 (Version 6)
Quarter: 2022Q1

REPORT INFORMATION
  Report Type: Spontaneous
  Country: US (occurrence: US)
  Receive Date: 20210805
  Receipt Date: 20220215
  Transmission Date: 20220423
  Serious: Yes (Other)
  Sender: FDA-Public Use
  Company Number: US-DECIPHERA PHARMACEUTICALS LLC-2021US000533

PATIENT
  Sex: Male

DRUGS (4)
  1. QINLOCK [Suspect]
     Active Substance: RIPRETINIB
     Indication: Gastrointestinal stromal tumour
     Dosage: UNK
  2. QINLOCK [Suspect]
     Active Substance: RIPRETINIB
     Dosage: 150 MILLIGRAM, QD
     Route: 048
  3. QINLOCK [Suspect]
     Active Substance: RIPRETINIB
     Dosage: 100 MILLIGRAM, QD
     Route: 048
  4. QINLOCK [Suspect]
     Active Substance: RIPRETINIB
     Dosage: 150 MILLIGRAM, QD
     Route: 048

REACTIONS (19)
  - Skin cancer [Unknown]
  - Dental caries [Unknown]
  - Contusion [Unknown]
  - Feeling cold [Unknown]
  - Blood pressure increased [Unknown]
  - General physical health deterioration [Unknown]
  - Muscle atrophy [Unknown]
  - Confusional state [Unknown]
  - Disease progression [Unknown]
  - Cyst [Unknown]
  - Tooth loss [Unknown]
  - Neoplasm progression [Unknown]
  - Cognitive disorder [Unknown]
  - Dizziness [Unknown]
  - Nausea [Unknown]
  - Alopecia [Unknown]
  - Fatigue [Unknown]
  - Therapeutic response unexpected [Unknown]
  - Incorrect dose administered [Unknown]

NARRATIVE: CASE EVENT DATE: 20210101
